FAERS Safety Report 9490794 (Version 1)
Quarter: 2013Q3

REPORT INFORMATION
  Report Type: Spontaneous
  Country: US (occurrence: None)
  Receive Date: 20130828
  Receipt Date: 20130828
  Transmission Date: 20140515
  Serious: Yes (Other)
  Sender: FDA-Public Use
  Company Number: None

PATIENT
  Age: 27 Year
  Sex: Female

DRUGS (1)
  1. MAKENA [Suspect]
     Indication: PREGNANCY
     Dosage: 250MG PER ML QWEEK IM
     Route: 030
     Dates: start: 20130726, end: 20130823

REACTIONS (1)
  - Uterine contractions abnormal [None]
